FAERS Safety Report 7581454-9 (Version None)
Quarter: 2011Q2

REPORT INFORMATION
  Report Type: 
  Country: None (occurrence: None)
  Receive Date: 20110629
  Receipt Date: 20110617
  Transmission Date: 20111010
  Serious: Yes (Hospitalization)
  Sender: FDA-Public Use
  Company Number: PHHY2011FR53710

PATIENT
  Sex: Male

DRUGS (3)
  1. MODOPAR [Suspect]
     Indication: PARKINSON'S DISEASE
     Dosage: 125 MG, TID
     Dates: start: 20100501
  2. EXELON [Suspect]
     Indication: PARKINSON'S DISEASE
     Dosage: 4.6 MG/24HR
     Route: 062
     Dates: start: 20101001, end: 20110419
  3. PRAMIPEXOLE DIHYCHLLORIDE [Concomitant]
     Indication: PARKINSON'S DISEASE
     Dosage: UNK UKN, UNK
     Dates: start: 20080101

REACTIONS (3)
  - COLITIS [None]
  - DIARRHOEA [None]
  - WEIGHT DECREASED [None]
